FAERS Safety Report 10057749 (Version 1)
Quarter: 2014Q2

REPORT INFORMATION
  Report Type: Spontaneous
  Country: US (occurrence: US)
  Receive Date: 20140404
  Receipt Date: 20140404
  Transmission Date: 20141212
  Serious: No
  Sender: FDA-Public Use
  Company Number: US-BIOGENIDEC-2014BI028188

PATIENT
  Age: 60 Year
  Sex: Female

DRUGS (7)
  1. TECFIDERA [Suspect]
     Indication: MULTIPLE SCLEROSIS
     Route: 048
     Dates: start: 20140228
  2. TECFIDERA [Suspect]
     Indication: MULTIPLE SCLEROSIS
     Route: 048
  3. KLONOPIN [Concomitant]
  4. OXYBUTYNIN [Concomitant]
  5. CALCIUM + VIT D [Concomitant]
  6. GLUCOSAMINE/ CHONDROITIN [Concomitant]
  7. BILBERRY EXTRACT [Concomitant]

REACTIONS (4)
  - Fatigue [Unknown]
  - Nausea [Unknown]
  - Hot flush [Unknown]
  - Diarrhoea [Unknown]
